FAERS Safety Report 16928699 (Version 1)
Quarter: 2019Q4

REPORT INFORMATION
  Report Type: Spontaneous
  Country: US (occurrence: US)
  Receive Date: 20190823
  Receipt Date: 20190823
  Transmission Date: 20200122
  Serious: Yes (Hospitalization)
  Sender: FDA-Public Use
  Company Number: None

PATIENT
  Age: 65 Year
  Sex: Male
  Weight: 60 kg

DRUGS (4)
  1. 5-FLUOROURACIL (5-FU) [Suspect]
     Active Substance: FLUOROURACIL
     Dates: end: 20190730
  2. LEUCOVORIN CALCIUM. [Suspect]
     Active Substance: LEUCOVORIN CALCIUM
     Dates: end: 20190730
  3. CAMPTOSAR [Suspect]
     Active Substance: IRINOTECAN HYDROCHLORIDE
     Dates: end: 20190730
  4. ELOXATIN [Suspect]
     Active Substance: OXALIPLATIN
     Dates: end: 20190730

REACTIONS (6)
  - Disease progression [None]
  - Device occlusion [None]
  - Cholangitis [None]
  - White blood cell count increased [None]
  - Blood calcium increased [None]
  - Neoplasm progression [None]

NARRATIVE: CASE EVENT DATE: 20190813
